FAERS Safety Report 5527506-6 (Version None)
Quarter: 2007Q4

REPORT INFORMATION
  Report Type: 
  Country: None (occurrence: None)
  Receive Date: 20071123
  Receipt Date: 20071112
  Transmission Date: 20080405
  Serious: Yes (Other)
  Sender: FDA-Public Use
  Company Number: 2007335083

PATIENT
  Age: 55 Year
  Sex: Female
  Weight: 72.6 kg

DRUGS (2)
  1. ROGAINE [Suspect]
     Indication: ALOPECIA
     Dosage: 1 ML, TWICE A DAY, TOPICAL
     Route: 061
     Dates: start: 20020101, end: 20070801
  2. MULTI-VITAMINS [Concomitant]

REACTIONS (3)
  - BLOOD PRESSURE INCREASED [None]
  - OEDEMA PERIPHERAL [None]
  - SCAB [None]
